FAERS Safety Report 19354701 (Version 1)
Quarter: 2021Q2

REPORT INFORMATION
  Report Type: Report from Study
  Country: None (occurrence: SE)
  Receive Date: 20210602
  Receipt Date: 20210602
  Transmission Date: 20210717
  Serious: Yes (Hospitalization)
  Sender: FDA-Public Use
  Company Number: SE-ABBVIE-21K-150-3926706-00

PATIENT
  Sex: Female

DRUGS (2)
  1. DUODOPA [Suspect]
     Active Substance: CARBIDOPA\LEVODOPA
     Indication: PARKINSON^S DISEASE
     Route: 050
     Dates: start: 20190403
  2. DUODOPA [Suspect]
     Active Substance: CARBIDOPA\LEVODOPA
     Dosage: CONTINUOUS DOSE DECREASED.
     Route: 050
     Dates: start: 202102

REACTIONS (6)
  - Hyperkinesia [Unknown]
  - Decreased appetite [Recovered/Resolved]
  - Dizziness [Unknown]
  - Weight decreased [Recovering/Resolving]
  - Nausea [Unknown]
  - Vomiting [Unknown]
